FAERS Safety Report 13937625 (Version 3)
Quarter: 2017Q3

REPORT INFORMATION
  Report Type: Spontaneous
  Country: GB (occurrence: GB)
  Receive Date: 20170905
  Receipt Date: 20170913
  Transmission Date: 20171127
  Serious: Yes (Death, Other)
  Sender: FDA-Public Use
  Company Number: GB-PFIZER INC-2017381533

PATIENT
  Age: 23 Year
  Sex: Male

DRUGS (4)
  1. COCAINE [Interacting]
     Active Substance: COCAINE
     Dosage: UNK
  2. PREGABALIN. [Suspect]
     Active Substance: PREGABALIN
     Dosage: UNK
     Route: 048
     Dates: start: 20170317
  3. DIAZEPAM. [Interacting]
     Active Substance: DIAZEPAM
     Dosage: UNK
     Dates: start: 20170317
  4. ZOPICLONE [Interacting]
     Active Substance: ZOPICLONE
     Dosage: UNK

REACTIONS (8)
  - Drug abuse [Fatal]
  - Gait disturbance [Unknown]
  - Snoring [Unknown]
  - Cardiac failure [Fatal]
  - Toxicity to various agents [Fatal]
  - Loss of consciousness [Unknown]
  - Alcohol interaction [Fatal]
  - Incoherent [Unknown]

NARRATIVE: CASE EVENT DATE: 2017
